FAERS Safety Report 8554624-0 (Version None)
Quarter: 2012Q3

REPORT INFORMATION
  Report Type: 
  Country: None (occurrence: None)
  Receive Date: 20120731
  Receipt Date: 20120601
  Transmission Date: 20120928
  Serious: No
  Sender: FDA-Public Use
  Company Number: US-009507513-1207USA008256

PATIENT

DRUGS (2)
  1. COPPERTONE SPORT DRY LOTION SPF-30 [Suspect]
     Dosage: UNK, ONCE
     Route: 061
     Dates: start: 20120601
  2. COPPERTONE SPORT DRY LOTION SPF-30 [Suspect]
     Indication: PRODUCT USED FOR UNKNOWN INDICATION
     Dosage: UNK, ONCE
     Route: 061
     Dates: start: 20120528

REACTIONS (1)
  - RASH MACULAR [None]
